FAERS Safety Report 4736517-X (Version None)
Quarter: 2005Q3

REPORT INFORMATION
  Report Type: 
  Country: None (occurrence: None)
  Receive Date: 20050802
  Receipt Date: 20050720
  Transmission Date: 20060218
  Serious: Yes (Hospitalization)
  Sender: FDA-Public Use
  Company Number: 2005104540

PATIENT
  Age: 8 Year
  Sex: Female

DRUGS (1)
  1. NEURONTIN [Suspect]
     Indication: NEUROPATHIC PAIN
     Dosage: 900 MG (300 MG, 3 IN 1 D),ORAL
     Route: 048
     Dates: start: 20050601

REACTIONS (2)
  - LEUKOPENIA [None]
  - NEUTROPENIA [None]
